FAERS Safety Report 15858366 (Version 1)
Quarter: 2018Q4

REPORT INFORMATION
  Report Type: Spontaneous
  Country: US (occurrence: US)
  Receive Date: 20181228
  Receipt Date: 20181228
  Transmission Date: 20190205
  Serious: No
  Sender: FDA-Public Use
  Company Number: None

PATIENT
  Age: 83 Year
  Sex: Female
  Weight: 64.41 kg

DRUGS (10)
  1. VITAMIN E [Concomitant]
     Active Substance: .ALPHA.-TOCOPHEROL
  2. TRIPLE MAGNESIUM COMPLEX [Concomitant]
  3. LEVOTHYROXINE. [Concomitant]
     Active Substance: LEVOTHYROXINE
  4. ALIVE [Concomitant]
  5. MYRETRIQ [Concomitant]
  6. VITAMIN D3 [Concomitant]
     Active Substance: CHOLECALCIFEROL
  7. FOLIC ACID. [Concomitant]
     Active Substance: FOLIC ACID
  8. PROLIA [Suspect]
     Active Substance: DENOSUMAB
     Indication: OSTEOPOROSIS
     Dosage: 1 SHOT ; TWICE A YR?
     Route: 058
     Dates: start: 201801
  9. TURMERIC [Concomitant]
     Active Substance: HERBALS\TURMERIC
  10. CAL/MAG/VIT D-3 [Concomitant]

REACTIONS (9)
  - Throat tightness [None]
  - Abdominal pain upper [None]
  - Rash pruritic [None]
  - Palpitations [None]
  - Hot flush [None]
  - Rash [None]
  - Diarrhoea [None]
  - Cough [None]
  - Jaw disorder [None]

NARRATIVE: CASE EVENT DATE: 20180813
